FAERS Safety Report 7519298-6 (Version None)
Quarter: 2011Q2

REPORT INFORMATION
  Report Type: 
  Country: None (occurrence: None)
  Receive Date: 20110602
  Receipt Date: 20110526
  Transmission Date: 20111010
  Serious: Yes (Other)
  Sender: FDA-Public Use
  Company Number: US-ROXANE LABORATORIES, INC.-2011-RO-00738RO

PATIENT
  Age: 94 Year
  Sex: Male

DRUGS (1)
  1. MEGESTROL ACETATE [Suspect]
     Indication: DECREASED APPETITE

REACTIONS (4)
  - AZOTAEMIA [None]
  - RENAL FAILURE ACUTE [None]
  - HYPERKALAEMIA [None]
  - SECONDARY ADRENOCORTICAL INSUFFICIENCY [None]
